FAERS Safety Report 24763888 (Version 2)
Quarter: 2025Q1

REPORT INFORMATION
  Report Type: Spontaneous
  Country: JP (occurrence: JP)
  Receive Date: 20241223
  Receipt Date: 20250115
  Transmission Date: 20250408
  Serious: No
  Sender: CSL BEHRING
  Company Number: JP-BEH-2024188498

PATIENT
  Age: 15 Year
  Sex: Female
  Weight: 40 kg

DRUGS (1)
  1. HIZENTRA [Suspect]
     Active Substance: HUMAN IMMUNOGLOBULIN G
     Indication: Immunoglobulin therapy
     Dosage: 100 MG, QW
     Route: 058

REACTIONS (1)
  - Product leakage [Recovered/Resolved]

NARRATIVE: CASE EVENT DATE: 20241218
